FAERS Safety Report 5906081-8 (Version None)
Quarter: 2008Q4

REPORT INFORMATION
  Report Type: 
  Country: None (occurrence: None)
  Receive Date: 20081002
  Receipt Date: 20080923
  Transmission Date: 20090506
  Serious: Yes (Other)
  Sender: FDA-Public Use
  Company Number: PHHY2008US22249

PATIENT
  Sex: Female

DRUGS (1)
  1. LIORESAL [Suspect]
     Indication: MUSCLE SPASTICITY
     Dosage: 450 UG, DAILY
     Route: 037

REACTIONS (6)
  - BODY TEMPERATURE INCREASED [None]
  - CONVULSION [None]
  - NAUSEA [None]
  - OVERDOSE [None]
  - UNDERDOSE [None]
  - WITHDRAWAL SYNDROME [None]
